FAERS Safety Report 6032010-5 (Version None)
Quarter: 2009Q1

REPORT INFORMATION
  Report Type: 
  Country: None (occurrence: None)
  Receive Date: 20090108
  Receipt Date: 20081231
  Transmission Date: 20090719
  Serious: Yes (Other)
  Sender: FDA-Public Use
  Company Number: PHHY2008FR33567

PATIENT
  Age: 82 Year
  Sex: Male

DRUGS (5)
  1. EXELON [Suspect]
     Indication: DEMENTIA ALZHEIMER'S TYPE
     Dosage: 4.6 MG, QD
     Route: 062
  2. PREVISCAN [Concomitant]
  3. ESOMEPRAZOLE MAGNESIUM [Concomitant]
  4. ZOPICLONE [Concomitant]
  5. SEROPRAM [Concomitant]

REACTIONS (6)
  - APPLICATION SITE REACTION [None]
  - BIOPSY SKIN [None]
  - DERMATITIS BULLOUS [None]
  - EXCORIATION [None]
  - PRURITUS [None]
  - RASH PAPULAR [None]
